FAERS Safety Report 17963107 (Version 2)
Quarter: 2020Q3

REPORT INFORMATION
  Report Type: Spontaneous
  Country: JP (occurrence: JP)
  Receive Date: 20200630
  Receipt Date: 20200806
  Transmission Date: 20201103
  Serious: Yes (Hospitalization, Other)
  Sender: FDA-Public Use
  Company Number: JP-ROCHE-2632012

PATIENT
  Age: 14 Year
  Sex: Female
  Weight: 36 kg

DRUGS (4)
  1. LOPERAMIDE [Suspect]
     Active Substance: LOPERAMIDE
     Dosage: UNCERTAIN DOSAGE BEFORE GOING TO BED
     Route: 048
     Dates: start: 20200619
  2. TRASTUZUMAB BIOSIMILAR 1 [Suspect]
     Active Substance: TRASTUZUMAB
     Indication: NEOPLASM MALIGNANT
     Dosage: DOSE INTERVAL UNCERTAINTY
     Route: 041
     Dates: start: 20200609
  3. PERJETA [Suspect]
     Active Substance: PERTUZUMAB
     Indication: NEOPLASM MALIGNANT
     Dosage: DOSE INTERVAL UNCERTAINTY
     Route: 041
     Dates: start: 20200609
  4. LOPERAMIDE [Suspect]
     Active Substance: LOPERAMIDE
     Indication: DIARRHOEA
     Dosage: DOSAGE IS UNCERTAIN.
     Route: 048
     Dates: start: 20200615, end: 20200620

REACTIONS (5)
  - Dysuria [Unknown]
  - Diarrhoea [Recovered/Resolved]
  - Off label use [Unknown]
  - Dehydration [Not Recovered/Not Resolved]
  - Dyschezia [Unknown]

NARRATIVE: CASE EVENT DATE: 20200612
